FAERS Safety Report 20912973 (Version 1)
Quarter: 2022Q2

REPORT INFORMATION
  Report Type: Spontaneous
  Country: US (occurrence: US)
  Receive Date: 20220603
  Receipt Date: 20220603
  Transmission Date: 20220721
  Serious: No
  Sender: FDA-Public Use
  Company Number: US-INCYTE CORPORATION-2022IN005269

PATIENT

DRUGS (1)
  1. JAKAFI [Suspect]
     Active Substance: RUXOLITINIB
     Indication: Oral disorder
     Dosage: 10 MILLIGRAM, BID
     Route: 048

REACTIONS (2)
  - Laboratory test abnormal [Unknown]
  - Off label use [Unknown]
